FAERS Safety Report 6835341-1 (Version None)
Quarter: 2010Q3

REPORT INFORMATION
  Report Type: 
  Country: None (occurrence: None)
  Receive Date: 20100707
  Receipt Date: 20100622
  Transmission Date: 20110219
  Serious: Yes (Disabling, Other)
  Sender: FDA-Public Use
  Company Number: 2010SP035249

PATIENT
  Sex: Female

DRUGS (1)
  1. IMPLANON [Suspect]
     Indication: CONTRACEPTION
     Dosage: 1 DF;

REACTIONS (3)
  - HAEMORRHAGE [None]
  - HEADACHE [None]
  - INTRACRANIAL PRESSURE INCREASED [None]
